FAERS Safety Report 24315030 (Version 2)
Quarter: 2024Q3

REPORT INFORMATION
  Report Type: Report from Study
  Country: CO (occurrence: CO)
  Receive Date: 20240913
  Receipt Date: 20240930
  Transmission Date: 20241017
  Serious: Yes (Hospitalization)
  Sender: UCB
  Company Number: CO-UCBSA-2023018670

PATIENT
  Age: 43 Year
  Sex: Female
  Weight: 84 kg

DRUGS (6)
  1. CERTOLIZUMAB PEGOL [Suspect]
     Active Substance: CERTOLIZUMAB PEGOL
     Indication: Psoriatic arthropathy
     Dosage: 400 MILLIGRAM, EV 30 DAYS
     Route: 058
     Dates: start: 20220318, end: 20230224
  2. CERTOLIZUMAB PEGOL [Suspect]
     Active Substance: CERTOLIZUMAB PEGOL
     Dosage: 400 MILLIGRAM, EV 30 DAYS
     Route: 058
     Dates: start: 20230505, end: 20231020
  3. CERTOLIZUMAB PEGOL [Suspect]
     Active Substance: CERTOLIZUMAB PEGOL
     Dosage: 400 MILLIGRAM, EV 30 DAYS
     Route: 058
     Dates: start: 20240209, end: 20240209
  4. ACETAMINOPHEN [Concomitant]
     Active Substance: ACETAMINOPHEN
     Indication: Psoriatic arthropathy
     Dosage: 500 MILLIGRAM
     Route: 048
  5. VITAMIN D NOS [Concomitant]
     Active Substance: CHOLECALCIFEROL\ERGOCALCIFEROL
     Indication: Psoriatic arthropathy
     Dosage: UNK
     Route: 048
  6. DOLEX FORTE [Concomitant]
     Active Substance: ACETAMINOPHEN\ASPIRIN\CAFFEINE
     Indication: Product used for unknown indication
     Dosage: UNK

REACTIONS (15)
  - Headache [Recovering/Resolving]
  - Abdominal pain [Recovering/Resolving]
  - Vomiting [Recovered/Resolved]
  - Influenza [Recovering/Resolving]
  - Furuncle [Recovered/Resolved]
  - Urinary tract infection [Recovered/Resolved]
  - Hordeolum [Recovered/Resolved]
  - Lymphadenopathy [Recovered/Resolved]
  - Diarrhoea [Recovered/Resolved]
  - Wound infection [Recovered/Resolved]
  - Umbilical hernia [Not Recovered/Not Resolved]
  - Decreased appetite [Recovered/Resolved]
  - Sinusitis [Not Recovered/Not Resolved]
  - Ovarian cyst [Not Recovered/Not Resolved]
  - Off label use [Unknown]

NARRATIVE: CASE EVENT DATE: 20220318
